FAERS Safety Report 9289149 (Version 1)
Quarter: 2013Q2

REPORT INFORMATION
  Report Type: Spontaneous
  Country: US (occurrence: US)
  Receive Date: 20130514
  Receipt Date: 20130514
  Transmission Date: 20140414
  Serious: Yes (Hospitalization)
  Sender: FDA-Public Use
  Company Number: US-ELI_LILLY_AND_COMPANY-US201305001672

PATIENT
  Sex: Female

DRUGS (6)
  1. FORTEO [Suspect]
     Indication: BONE LOSS
     Dosage: UNK, QD
     Dates: start: 201302
  2. PROTONIX [Concomitant]
     Indication: BARRETT^S OESOPHAGUS
     Dosage: 40 MG, EACH MORNING
  3. SPIRIVA [Concomitant]
     Dosage: UNK, EACH MORNING
  4. ADVAIR [Concomitant]
     Dosage: UNK, EACH MORNING
  5. ENSURE                             /06184901/ [Concomitant]
  6. VITAMIN D [Concomitant]
     Dosage: 50000 IU, WEEKLY (1/W)

REACTIONS (9)
  - Loss of consciousness [Unknown]
  - Rectal haemorrhage [Unknown]
  - Hyperhidrosis [Unknown]
  - Nausea [Not Recovered/Not Resolved]
  - Nausea [Not Recovered/Not Resolved]
  - Cold sweat [Unknown]
  - Diarrhoea [Unknown]
  - Decreased appetite [Unknown]
  - Injection site bruising [Unknown]
